FAERS Safety Report 17361957 (Version 1)
Quarter: 2020Q1

REPORT INFORMATION
  Report Type: Spontaneous
  Country: IT (occurrence: IT)
  Receive Date: 20200203
  Receipt Date: 20200203
  Transmission Date: 20200409
  Serious: Yes (Hospitalization)
  Sender: FDA-Public Use
  Company Number: NVSC2020IT024206

PATIENT
  Age: 83 Year
  Sex: Male

DRUGS (2)
  1. BISOPROLOL FUMARATE. [Suspect]
     Active Substance: BISOPROLOL FUMARATE
     Indication: PRODUCT ADMINISTRATION ERROR
     Dosage: 2 DF
     Route: 048
     Dates: start: 20191101, end: 20191101
  2. VERAPAMIL [Suspect]
     Active Substance: VERAPAMIL HYDROCHLORIDE
     Indication: PRODUCT ADMINISTRATION ERROR
     Dosage: 2 DF
     Route: 048
     Dates: start: 20191101, end: 20191101

REACTIONS (2)
  - Medication error [Unknown]
  - Bradycardia [Unknown]

NARRATIVE: CASE EVENT DATE: 20191101
